FAERS Safety Report 10142305 (Version 2)
Quarter: 2014Q2

REPORT INFORMATION
  Report Type: Report from Study
  Country: US (occurrence: US)
  Receive Date: 20140429
  Receipt Date: 20140511
  Transmission Date: 20141212
  Serious: Yes (Other)
  Sender: FDA-Public Use
  Company Number: PHEH2014US008468

PATIENT
  Age: 62 Year
  Sex: Female
  Weight: 125.17 kg

DRUGS (1)
  1. GILENYA [Suspect]
     Indication: MULTIPLE SCLEROSIS
     Dosage: 0.5 MG, QD
     Route: 048
     Dates: start: 20110622

REACTIONS (3)
  - Skin cancer [Recovering/Resolving]
  - Polyp [Recovering/Resolving]
  - Endotracheal intubation complication [Unknown]
